FAERS Safety Report 15314107 (Version 1)
Quarter: 2018Q3

REPORT INFORMATION
  Report Type: Spontaneous
  Country: FR (occurrence: FR)
  Receive Date: 20180824
  Receipt Date: 20180824
  Transmission Date: 20181010
  Serious: Yes (Hospitalization)
  Sender: FDA-Public Use
  Company Number: FR-TEVA-2018-FR-948269

PATIENT
  Age: 57 Year
  Sex: Female

DRUGS (12)
  1. ZUCLOPENTHIXOL DIHYDROCHLORIDE [Suspect]
     Active Substance: ZUCLOPENTHIXOL HYDROCHLORIDE
     Indication: SCHIZOAFFECTIVE DISORDER
     Dosage: DOSE WAS TITRATED FROM 5 TO 40 MG DAILY OVER 2 WEEKS
     Route: 065
  2. BISOPROLOL [Concomitant]
     Active Substance: BISOPROLOL
     Indication: HYPERTENSION
     Route: 065
  3. ATORVASTATIN [Concomitant]
     Active Substance: ATORVASTATIN
     Indication: HYPERTENSION
     Route: 065
  4. CYAMEMAZINE [Suspect]
     Active Substance: CYAMEMAZINE
     Indication: PROPHYLAXIS
     Dosage: 50 MILLIGRAM DAILY;
     Route: 065
  5. CYAMEMAZINE [Suspect]
     Active Substance: CYAMEMAZINE
     Dosage: CONTINUED AT A LOW DOSE, 50 MG TO 100 MG
     Route: 065
  6. ZUCLOPENTHIXOL DECANOATE [Interacting]
     Active Substance: ZUCLOPENTHIXOL DECANOATE
     Indication: SCHIZOAFFECTIVE DISORDER
     Dosage: LONG?ACTING INJECTABLE
     Route: 065
  7. LERCANIDIPINE [Suspect]
     Active Substance: LERCANIDIPINE
     Indication: HYPERTENSION
     Route: 065
  8. ZUCLOPENTHIXOL ACETATE [Suspect]
     Active Substance: ZUCLOPENTHIXOL ACETATE
     Indication: SCHIZOAFFECTIVE DISORDER
     Dosage: THE SHORT?ACTING FORM OF THE DRUG
     Route: 030
  9. METFORMIN [Concomitant]
     Active Substance: METFORMIN HYDROCHLORIDE
     Indication: TYPE 2 DIABETES MELLITUS
     Route: 065
  10. CYAMEMAZINE [Suspect]
     Active Substance: CYAMEMAZINE
     Indication: SCHIZOAFFECTIVE DISORDER
     Route: 065
  11. CYAMEMAZINE [Suspect]
     Active Substance: CYAMEMAZINE
     Dosage: 25 MG TO 75 MG DAILY
     Route: 065
  12. ESCITALOPRAM [Suspect]
     Active Substance: ESCITALOPRAM OXALATE
     Indication: DEPRESSIVE SYMPTOM
     Route: 065

REACTIONS (16)
  - Suicide attempt [Unknown]
  - Anxiety [Unknown]
  - Accidental overdose [Unknown]
  - Wrong drug administered [Unknown]
  - Hepatocellular injury [Unknown]
  - Vasoplegia syndrome [Unknown]
  - Dehydration [Unknown]
  - Psychomotor hyperactivity [Unknown]
  - Depression [Unknown]
  - Drug interaction [Unknown]
  - Hypernatraemia [Unknown]
  - Mucous membrane disorder [Unknown]
  - Acute kidney injury [Unknown]
  - Hypotension [Unknown]
  - Skin atrophy [Unknown]
  - Neuroleptic malignant syndrome [Recovered/Resolved]
